FAERS Safety Report 12378851 (Version 1)
Quarter: 2016Q2

REPORT INFORMATION
  Report Type: Report from Study
  Country: US (occurrence: ES)
  Receive Date: 20160517
  Receipt Date: 20160517
  Transmission Date: 20160815
  Serious: Yes (Hospitalization, Other)
  Sender: FDA-Public Use
  Company Number: ES-FRI-1000084122

PATIENT
  Age: 75 Year
  Sex: Female

DRUGS (6)
  1. TIGECYCLINE. [Concomitant]
     Active Substance: TIGECYCLINE
     Indication: INFECTION
  2. AVYCAZ [Suspect]
     Active Substance: AVIBACTAM SODIUM\CEFTAZIDIME
     Indication: KLEBSIELLA INFECTION
     Dosage: 2.5 G/8H I.V 2H INFUSION
     Route: 042
     Dates: start: 20150731, end: 20150813
  3. MEROPENEM. [Suspect]
     Active Substance: MEROPENEM
     Indication: INFECTION
     Dosage: 9 GRAM
     Route: 042
     Dates: start: 20150722, end: 20150828
  4. AMIKACIN [Concomitant]
     Active Substance: AMIKACIN
  5. AVYCAZ [Suspect]
     Active Substance: AVIBACTAM SODIUM\CEFTAZIDIME
     Indication: KLEBSIELLA INFECTION
     Dosage: 2.5 G/8H I.V 2H INFUSION
     Route: 042
     Dates: start: 20150731, end: 20150825
  6. COLISTIN [Concomitant]
     Active Substance: COLISTIN
     Indication: INFECTION

REACTIONS (1)
  - Status epilepticus [Recovered/Resolved]

NARRATIVE: CASE EVENT DATE: 20150824
